FAERS Safety Report 9018037 (Version 1)
Quarter: 2013Q1

REPORT INFORMATION
  Report Type: Spontaneous
  Country: US (occurrence: None)
  Receive Date: 20130110
  Receipt Date: 20130110
  Transmission Date: 20140127
  Serious: Yes (Hospitalization)
  Sender: FDA-Public Use
  Company Number: None

PATIENT
  Sex: Male
  Weight: 78.65 kg

DRUGS (1)
  1. ALFA 2 INTERFERON 2B (INTRON-A) [Suspect]
     Dates: end: 20121219

REACTIONS (7)
  - Oedema [None]
  - Pneumonia [None]
  - Pulmonary oedema [None]
  - Cardiac failure congestive [None]
  - Neutropenia [None]
  - Atrial fibrillation [None]
  - Anaemia [None]
